FAERS Safety Report 13014884 (Version 4)
Quarter: 2020Q1

REPORT INFORMATION
  Report Type: Spontaneous
  Country: FR (occurrence: FR)
  Receive Date: 20161209
  Receipt Date: 20200324
  Transmission Date: 20200409
  Serious: Yes (Hospitalization, Other)
  Sender: FDA-Public Use
  Company Number: FR-GILEAD-2016-0248130

PATIENT

DRUGS (25)
  1. RITONAVIR. [Suspect]
     Active Substance: RITONAVIR
     Indication: HIV INFECTION
     Dosage: DOSAGE FORM: UNSPECIFIED, MOTHER DOSING
     Route: 064
  2. FOSAMPRENAVIR [Suspect]
     Active Substance: FOSAMPRENAVIR
     Dosage: DOSAGE FORM: UNSPECIFIED, MOTHER DOSING
     Route: 064
  3. VIRACEPT [Suspect]
     Active Substance: NELFINAVIR MESYLATE
     Indication: HIV INFECTION
     Dosage: DOSAGE FORM: UNSPECIFIED, MOTHER DOSING
     Route: 064
  4. LAMIVUDINE. [Suspect]
     Active Substance: LAMIVUDINE
     Indication: HIV INFECTION
     Dosage: DOSAGE FORM: UNSPECIFIED, MOTHER DOSING
     Route: 064
  5. EDURANT [Suspect]
     Active Substance: RILPIVIRINE HYDROCHLORIDE
     Indication: HIV INFECTION
     Route: 064
  6. TENOFOVIR DISOPROXIL FUMARATE. [Suspect]
     Active Substance: TENOFOVIR DISOPROXIL FUMARATE
     Indication: HIV INFECTION
     Route: 064
  7. LOPINAVIR [Suspect]
     Active Substance: LOPINAVIR
     Indication: HIV INFECTION
     Dosage: DOSAGE FORM: UNSPECIFIED, MOTHER DOSING
     Route: 064
  8. LOPINAVIR [Suspect]
     Active Substance: LOPINAVIR
     Dosage: DOSAGE FORM: UNSPECIFIED, MOTHER DOSING
     Route: 064
  9. EMTRICITABINE/RILPIVIRINE/TENOFOVIR DF [Suspect]
     Active Substance: EMTRICITABINE\RILPIVIRINE\TENOFOVIR DISOPROXIL FUMARATE
     Indication: HIV INFECTION
     Route: 064
  10. ATAZANAVIR. [Suspect]
     Active Substance: ATAZANAVIR
     Indication: HIV INFECTION
     Dosage: DOSAGE FORM: UNSPECIFIED, MOTHER DOSING
     Route: 064
  11. ZIDOVUDINE. [Suspect]
     Active Substance: ZIDOVUDINE
     Dosage: DOSAGE FORM: UNSPECIFIED, MOTHER DOSING
     Route: 064
  12. ABACAVIR. [Suspect]
     Active Substance: ABACAVIR
     Indication: HIV INFECTION
     Dosage: DOSAGE FORM: UNSPECIFIED, MOTHER DOSING
     Route: 064
  13. DIDANOSINE. [Suspect]
     Active Substance: DIDANOSINE
     Dosage: DOSAGE FORM: UNSPECIFIED, MOTHER DOSING
     Route: 064
  14. ZIDOVUDINE. [Suspect]
     Active Substance: ZIDOVUDINE
     Indication: HIV INFECTION
     Dosage: DOSAGE FORM: UNSPECIFIED, MOTHER DOSING
     Route: 064
  15. PREZISTA [Suspect]
     Active Substance: DARUNAVIR ETHANOLATE
     Indication: HIV INFECTION
     Route: 064
  16. ATAZANAVIR. [Suspect]
     Active Substance: ATAZANAVIR
     Dosage: DOSAGE FORM: UNSPECIFIED, MOTHER DOSING
     Route: 064
  17. EMTRIVA [Suspect]
     Active Substance: EMTRICITABINE
     Indication: HIV INFECTION
     Dosage: DOSAGE FORM: UNSPECIFIED, MOTHER DOSING
     Route: 064
  18. INVIRASE [Suspect]
     Active Substance: SAQUINAVIR MESYLATE
     Indication: HIV INFECTION
     Dosage: DOSAGE FORM: UNSPECIFIED, MOTHER DOSING
     Route: 062
  19. ABACAVIR. [Suspect]
     Active Substance: ABACAVIR
     Dosage: DOSAGE FORM: UNSPECIFIED, MOTHER DOSING
     Route: 064
  20. CRIXIVAN [Suspect]
     Active Substance: INDINAVIR SULFATE
     Indication: HIV INFECTION
     Dosage: DOSAGE FORM: UNSPECIFIED, MOTHER DOSING
     Route: 064
  21. LAMIVUDINE. [Suspect]
     Active Substance: LAMIVUDINE
     Dosage: DOSAGE FORM: UNSPECIFIED, MOTHER DOSING
     Route: 064
  22. DIDANOSINE. [Suspect]
     Active Substance: DIDANOSINE
     Indication: HIV INFECTION
     Dosage: DOSAGE FORM: UNSPECIFIED, MOTHER DOSING
     Route: 064
  23. INTELENCE [Suspect]
     Active Substance: ETRAVIRINE
     Indication: HIV INFECTION
     Route: 064
  24. RITONAVIR. [Suspect]
     Active Substance: RITONAVIR
     Dosage: DOSAGE FORM: UNSPECIFIED, MOTHER DOSING
     Route: 064
  25. FOSAMPRENAVIR [Suspect]
     Active Substance: FOSAMPRENAVIR
     Indication: HIV INFECTION
     Dosage: DOSAGE FORM: UNSPECIFIED, MOTHER DOSING
     Route: 064

REACTIONS (2)
  - Foetal exposure during pregnancy [Unknown]
  - Premature baby [Unknown]
